FAERS Safety Report 16326566 (Version 1)
Quarter: 2019Q2

REPORT INFORMATION
  Report Type: Spontaneous
  Country: US (occurrence: US)
  Receive Date: 20190517
  Receipt Date: 20190517
  Transmission Date: 20190711
  Serious: No
  Sender: FDA-Public Use
  Company Number: US-TAIHO ONCOLOGY  INC-EU-2018-01893

PATIENT
  Sex: Female

DRUGS (1)
  1. LONSURF [Suspect]
     Active Substance: TIPIRACIL HYDROCHLORIDE\TRIFLURIDINE
     Indication: COLON CANCER
     Dosage: UNIT DOSE: THREE 20 MG TABLETS AND ONE 15 MG TABLET
     Route: 048
     Dates: start: 20180614

REACTIONS (3)
  - Malaise [Unknown]
  - Hyperhidrosis [Unknown]
  - Nausea [Unknown]

NARRATIVE: CASE EVENT DATE: 2018
